FAERS Safety Report 6177591-6 (Version None)
Quarter: 2009Q2

REPORT INFORMATION
  Report Type: 
  Country: None (occurrence: None)
  Receive Date: 20090504
  Receipt Date: 20090424
  Transmission Date: 20091009
  Serious: Yes (Other)
  Sender: FDA-Public Use
  Company Number: US-PFIZER INC-2005140191

PATIENT
  Sex: Female
  Weight: 73 kg

DRUGS (9)
  1. PROVERA [Suspect]
     Indication: HORMONE REPLACEMENT THERAPY
     Dosage: UNK
     Route: 048
     Dates: start: 19930101, end: 19980101
  2. PREMARIN [Suspect]
     Indication: HORMONE REPLACEMENT THERAPY
     Dosage: 0.625 MG, UNK
     Route: 065
     Dates: start: 19930101, end: 19980101
  3. PREMPRO [Suspect]
     Indication: HORMONE REPLACEMENT THERAPY
     Dosage: 0.625MG/5MG
     Route: 065
     Dates: start: 19980101, end: 20020101
  4. PROZAC [Concomitant]
     Indication: ANXIETY
     Dosage: UNK
     Dates: start: 19860101
  5. NEXIUM [Concomitant]
     Indication: GASTROINTESTINAL DISORDER
     Dosage: UNK
     Dates: start: 19960101
  6. MYLANTA [Concomitant]
     Indication: GASTROINTESTINAL DISORDER
     Dosage: UNK
     Dates: start: 19960101
  7. FOSAMAX [Concomitant]
     Indication: OSTEOPOROSIS
     Dosage: UNK
     Dates: start: 20010101
  8. COREG [Concomitant]
     Indication: CARDIAC FAILURE CONGESTIVE
     Dosage: UNK
     Dates: start: 20030101
  9. ACCUPRO [Concomitant]
     Indication: CARDIAC FAILURE CONGESTIVE
     Dosage: UNK
     Dates: start: 20030101

REACTIONS (1)
  - BREAST CANCER [None]
